FAERS Safety Report 8029189-2 (Version None)
Quarter: 2012Q1

REPORT INFORMATION
  Report Type: 
  Country: None (occurrence: None)
  Receive Date: 20120106
  Receipt Date: 20111229
  Transmission Date: 20120608
  Serious: Yes (Hospitalization, Other)
  Sender: FDA-Public Use
  Company Number: PHEH2011US012871

PATIENT
  Sex: Female

DRUGS (7)
  1. PRILOSEC [Concomitant]
     Dosage: 20 MG, DAILY
  2. SKELAXIN [Concomitant]
     Indication: MUSCLE RELAXANT THERAPY
     Dosage: 800 MG, 2XDAY
  3. DILANTIN                                /CAN/ [Concomitant]
     Dosage: 100 MG, 4 TIMES A DAY
  4. MYSOLINE [Concomitant]
     Dosage: 250 MG, 2 X DAY
  5. DICLOFENAC SODIUM [Concomitant]
     Indication: ANTIINFLAMMATORY THERAPY
     Dosage: 50 MG, DAILY
  6. ATIVAN [Concomitant]
     Indication: PHOBIA
     Dosage: 3 DF, DAILY
  7. VALTURNA [Suspect]
     Dosage: 1 DF (150/160 MG), DAILY

REACTIONS (8)
  - COUGH [None]
  - CHOLELITHIASIS [None]
  - OEDEMA PERIPHERAL [None]
  - BRONCHITIS [None]
  - PAIN [None]
  - INCREASED BRONCHIAL SECRETION [None]
  - RHINORRHOEA [None]
  - MALAISE [None]
